FAERS Safety Report 17871745 (Version 1)
Quarter: 2020Q2

REPORT INFORMATION
  Report Type: Spontaneous
  Country: NZ (occurrence: NZ)
  Receive Date: 20200608
  Receipt Date: 20200608
  Transmission Date: 20200714
  Serious: Yes (Death)
  Sender: FDA-Public Use
  Company Number: NZ-MYLANLABS-2016M1038806

PATIENT
  Sex: Male

DRUGS (2)
  1. CLOZARIL [Suspect]
     Active Substance: CLOZAPINE
     Indication: SCHIZOPHRENIA
     Dosage: 700 MG, UNK
     Route: 048
     Dates: start: 19931015
  2. CLOZARIL [Suspect]
     Active Substance: CLOZAPINE
     Dosage: 600 MG (200AM+400PM)
     Route: 048
     Dates: start: 1995

REACTIONS (6)
  - Sepsis [Fatal]
  - Somnolence [Unknown]
  - Sedation [Unknown]
  - Megacolon [Fatal]
  - Emotional disorder [Unknown]
  - Infrequent bowel movements [Unknown]
